FAERS Safety Report 12841187 (Version 2)
Quarter: 2017Q1

REPORT INFORMATION
  Report Type: Spontaneous
  Country: US (occurrence: None)
  Receive Date: 20161012
  Receipt Date: 20170110
  Transmission Date: 20170428
  Serious: No
  Sender: FDA-Public Use
  Company Number: NAVIDEA BIOPHARMACEUTICALS-NVUS1600-16-00018

PATIENT
  Sex: Female

DRUGS (1)
  1. LYMPHOSEEK [Suspect]
     Active Substance: TECHNETIUM TC-99M TILMANOCEPT
     Indication: LYMPHATIC MAPPING
     Dosage: 50 MCG
     Route: 058
     Dates: start: 20160825, end: 20160825

REACTIONS (2)
  - Drug ineffective [Recovered/Resolved]
  - Off label use [Recovered/Resolved]

NARRATIVE: CASE EVENT DATE: 20160825
